FAERS Safety Report 11506674 (Version 1)
Quarter: 2015Q3

REPORT INFORMATION
  Report Type: Spontaneous
  Country: US (occurrence: None)
  Receive Date: 20150914
  Receipt Date: 20150914
  Transmission Date: 20151125
  Serious: No
  Sender: FDA-Public Use
  Company Number: None

PATIENT
  Age: 34 Year
  Sex: Male
  Weight: 69.4 kg

DRUGS (2)
  1. LORAZEPAM. [Concomitant]
     Active Substance: LORAZEPAM
  2. VENLAFAXINE [Suspect]
     Active Substance: VENLAFAXINE HYDROCHLORIDE
     Indication: DEPRESSION
     Dosage: 1/2 TABLET
     Route: 048

REACTIONS (13)
  - Coordination abnormal [None]
  - Hypersomnia [None]
  - Nausea [None]
  - Somnolence [None]
  - Insomnia [None]
  - Headache [None]
  - Dysarthria [None]
  - Mydriasis [None]
  - Constipation [None]
  - Hyperhidrosis [None]
  - Decreased appetite [None]
  - Libido decreased [None]
  - Sexual dysfunction [None]
